FAERS Safety Report 8291166-4 (Version None)
Quarter: 2012Q2

REPORT INFORMATION
  Report Type: 
  Country: None (occurrence: None)
  Receive Date: 20120417
  Receipt Date: 20120411
  Transmission Date: 20120825
  Serious: Yes (Hospitalization)
  Sender: FDA-Public Use
  Company Number: FI-MERCK-1204USA01810

PATIENT
  Age: 63 Year
  Sex: Male

DRUGS (4)
  1. MICARDIS HCT [Concomitant]
     Route: 065
     Dates: start: 20090701
  2. JANUMET [Suspect]
     Indication: DIABETES MELLITUS
     Route: 047
     Dates: start: 20091230, end: 20100401
  3. AMLODIPINE [Concomitant]
     Route: 065
  4. PRIMASPAN [Concomitant]
     Route: 065

REACTIONS (4)
  - INAPPROPRIATE SCHEDULE OF DRUG ADMINISTRATION [None]
  - DERMATITIS EXFOLIATIVE [None]
  - FATIGUE [None]
  - PYREXIA [None]
